FAERS Safety Report 23880879 (Version 1)
Quarter: 2024Q2

REPORT INFORMATION
  Report Type: Spontaneous
  Country: US (occurrence: None)
  Receive Date: 20240521
  Receipt Date: 20240521
  Transmission Date: 20240716
  Serious: Yes (Death)
  Sender: FDA-Public Use
  Company Number: None

PATIENT
  Age: 80 Year
  Sex: Female

DRUGS (1)
  1. RETACRIT [Suspect]
     Active Substance: EPOETIN ALFA-EPBX
     Indication: Nephrogenic anaemia
     Dosage: FREQUENCY : WEEKLY;?
     Route: 058
     Dates: start: 20210316, end: 20210430

REACTIONS (1)
  - Death [None]

NARRATIVE: CASE EVENT DATE: 20240430
